FAERS Safety Report 9451580 (Version 1)
Quarter: 2013Q3

REPORT INFORMATION
  Report Type: Spontaneous
  Country: GB (occurrence: GB)
  Receive Date: 20130811
  Receipt Date: 20130811
  Transmission Date: 20140515
  Serious: Yes (Other)
  Sender: FDA-Public Use
  Company Number: GB-009507513-1308GBR001508

PATIENT
  Age: 42 Year
  Sex: Male

DRUGS (4)
  1. RIBAVIRIN [Suspect]
     Indication: HEPATITIS C
     Dosage: UNK
     Route: 048
  2. RIBAVIRIN [Suspect]
     Dosage: UNK
     Route: 048
  3. PEGINTERFERON ALFA-2B [Suspect]
     Indication: HEPATITIS C
  4. TELAPREVIR [Suspect]
     Indication: HEPATITIS C
     Dosage: 750 MG, TID
     Route: 048
     Dates: start: 20121116

REACTIONS (3)
  - Nausea [Not Recovered/Not Resolved]
  - Dry skin [Not Recovered/Not Resolved]
  - Anaemia [Not Recovered/Not Resolved]
